FAERS Safety Report 5017520-1 (Version None)
Quarter: 2006Q2

REPORT INFORMATION
  Report Type: 
  Country: None (occurrence: None)
  Receive Date: 20060601
  Receipt Date: 20060601
  Transmission Date: 20061013
  Serious: Yes (Other)
  Sender: FDA-Public Use
  Company Number: None

PATIENT
  Age: 87 Year
  Sex: Female

DRUGS (2)
  1. LEXAPRO [Suspect]
     Indication: DEPRESSION
     Dosage: 10 MG   QAM   PO
     Route: 048
     Dates: start: 20060412, end: 20060502
  2. LEXAPRO [Suspect]
     Indication: VASCULAR DEMENTIA
     Dosage: 10 MG   QAM   PO
     Route: 048
     Dates: start: 20060412, end: 20060502

REACTIONS (2)
  - HEAD TITUBATION [None]
  - TREMOR [None]
